FAERS Safety Report 5153717-8 (Version None)
Quarter: 2006Q4

REPORT INFORMATION
  Report Type: 
  Country: None (occurrence: None)
  Receive Date: 20061118
  Receipt Date: 20061110
  Transmission Date: 20070319
  Serious: Yes (Other)
  Sender: FDA-Public Use
  Company Number: US-JNJFOC-20061102764

PATIENT
  Sex: Male
  Weight: 101.61 kg

DRUGS (11)
  1. REMICADE [Suspect]
     Indication: SWEAT GLAND INFECTION
     Route: 042
  2. REMICADE [Suspect]
     Indication: CROHN'S DISEASE
     Route: 042
  3. PREDNI [Concomitant]
     Route: 048
  4. VITAMIN CAP [Concomitant]
     Route: 048
  5. ASCORBIC ACID [Concomitant]
     Route: 048
  6. CELEXA [Concomitant]
     Route: 048
  7. TYLENOL [Concomitant]
  8. LACTOBACILLUS [Concomitant]
     Route: 048
  9. CAL CARB [Concomitant]
     Route: 048
  10. PRILOSEC [Concomitant]
     Route: 048
  11. LEVAQUIN [Concomitant]
     Route: 048

REACTIONS (1)
  - BLADDER CANCER [None]
